FAERS Safety Report 21600817 (Version 1)
Quarter: 2022Q4

REPORT INFORMATION
  Report Type: Spontaneous
  Country: JP (occurrence: JP)
  Receive Date: 20221116
  Receipt Date: 20221116
  Transmission Date: 20230112
  Serious: Yes (Death)
  Sender: FDA-Public Use
  Company Number: JP-UCBJ-CD202211529UCBPHAPROD

PATIENT
  Age: 75 Year
  Sex: Male

DRUGS (1)
  1. VIMPAT [Suspect]
     Active Substance: LACOSAMIDE
     Indication: Epilepsy
     Dosage: 50 MILLIGRAM, 2X/DAY (BID)
     Route: 048
     Dates: start: 20221018, end: 20221022

REACTIONS (2)
  - General physical health deterioration [Fatal]
  - Off label use [Unknown]

NARRATIVE: CASE EVENT DATE: 20221018
